FAERS Safety Report 9525659 (Version 1)
Quarter: 2013Q1

REPORT INFORMATION
  Report Type: Spontaneous
  Country: US (occurrence: None)
  Receive Date: 20130314
  Receipt Date: 20130314
  Transmission Date: 20140127
  Serious: Yes (Hospitalization)
  Sender: FDA-Public Use
  Company Number: 1301USA012341

PATIENT
  Age: 50 Year
  Sex: Female

DRUGS (3)
  1. VICTRELIS [Suspect]
     Indication: HEPATITIS C
  2. RIBAVIRIN (RIBAVIRIN) CAPSULE [Suspect]
  3. INTERFERON [Suspect]

REACTIONS (1)
  - Anaemia [None]
